FAERS Safety Report 10055896 (Version 1)
Quarter: 2014Q2

REPORT INFORMATION
  Report Type: Spontaneous
  Country: US (occurrence: US)
  Receive Date: 20140403
  Receipt Date: 20140403
  Transmission Date: 20141212
  Serious: Yes (Hospitalization)
  Sender: FDA-Public Use
  Company Number: US-JNJFOC-20140317197

PATIENT
  Age: 62 Year
  Sex: Female
  Weight: 65.77 kg

DRUGS (4)
  1. REMICADE [Suspect]
     Indication: CROHN^S DISEASE
     Route: 042
     Dates: start: 20140320
  2. REMICADE [Suspect]
     Indication: CROHN^S DISEASE
     Route: 042
     Dates: start: 1998
  3. SOLU-MEDROL [Suspect]
     Indication: PRODUCT USED FOR UNKNOWN INDICATION
     Route: 065
     Dates: start: 20140320
  4. APRISO [Concomitant]
     Indication: CROHN^S DISEASE
     Route: 048

REACTIONS (10)
  - Cholecystectomy [Unknown]
  - Crohn^s disease [Recovered/Resolved]
  - H1N1 influenza [Recovered/Resolved]
  - Intestinal resection [Unknown]
  - Oophorectomy [Unknown]
  - Intestinal obstruction [Recovered/Resolved]
  - Infection [Recovered/Resolved]
  - Vein disorder [Not Recovered/Not Resolved]
  - Feeling jittery [Unknown]
  - Palpitations [Unknown]
